FAERS Safety Report 9739546 (Version 1)
Quarter: 2013Q4

REPORT INFORMATION
  Report Type: Spontaneous
  Country: US (occurrence: US)
  Receive Date: 20131209
  Receipt Date: 20131209
  Transmission Date: 20140711
  Serious: Yes (Life-Threatening)
  Sender: FDA-Public Use
  Company Number: US-ASTRAZENECA-2013SE88198

PATIENT
  Age: 24 Year
  Sex: Female

DRUGS (7)
  1. LIDOCAINE [Suspect]
     Indication: ANAESTHESIA
     Route: 053
  2. PROPOFOL [Suspect]
     Indication: GENERAL ANAESTHESIA
     Route: 042
  3. FENTANYL [Suspect]
     Indication: GENERAL ANAESTHESIA
     Route: 065
  4. ROCURONIUM [Suspect]
     Indication: GENERAL ANAESTHESIA
     Route: 065
  5. SEVOFLURANE [Suspect]
     Indication: GENERAL ANAESTHESIA
     Route: 065
  6. DEXAMETHASONE [Concomitant]
  7. CEFAZOLIN [Concomitant]

REACTIONS (1)
  - Stress cardiomyopathy [Recovered/Resolved]
